FAERS Safety Report 12443968 (Version 1)
Quarter: 2016Q2

REPORT INFORMATION
  Report Type: Spontaneous
  Country: US (occurrence: US)
  Receive Date: 20160607
  Receipt Date: 20160607
  Transmission Date: 20160815
  Serious: No
  Sender: FDA-Public Use
  Company Number: US-SA-2016SA097384

PATIENT
  Age: 54 Year
  Sex: Female

DRUGS (11)
  1. LANTUS SOLOSTAR [Suspect]
     Active Substance: INSULIN GLARGINE
     Dosage: DOSE:44 UNIT(S)
     Route: 065
  2. APIDRA SOLOSTAR [Suspect]
     Active Substance: INSULIN GLULISINE
     Indication: TYPE 2 DIABETES MELLITUS
     Dosage: DOSE:12-18 UNITS
     Route: 065
     Dates: start: 201411
  3. SOLOSTAR [Concomitant]
     Active Substance: DEVICE
     Indication: TYPE 2 DIABETES MELLITUS
     Dates: start: 201411
  4. SOLOSTAR [Concomitant]
     Active Substance: DEVICE
     Dates: start: 201507
  5. TOUJEO [Suspect]
     Active Substance: INSULIN GLARGINE
     Dosage: DOSE:44 UNIT(S)
     Route: 065
     Dates: start: 201507
  6. AMARYL [Suspect]
     Active Substance: GLIMEPIRIDE
     Dosage: AMARLY:2MG
     Route: 065
  7. SOLOSTAR [Concomitant]
     Active Substance: DEVICE
     Dates: start: 201509
  8. LANTUS SOLOSTAR [Suspect]
     Active Substance: INSULIN GLARGINE
     Dosage: DOSE:44 UNIT(S)
     Route: 065
  9. TOUJEO [Suspect]
     Active Substance: INSULIN GLARGINE
     Dosage: DOSE:44 UNIT(S)
     Route: 065
     Dates: start: 201509
  10. SOLOSTAR [Concomitant]
     Active Substance: DEVICE
  11. SOLOSTAR [Concomitant]
     Active Substance: DEVICE

REACTIONS (1)
  - Carpal tunnel syndrome [Unknown]
